FAERS Safety Report 6834480-9 (Version None)
Quarter: 2010Q3

REPORT INFORMATION
  Report Type: 
  Country: None (occurrence: None)
  Receive Date: 20100712
  Receipt Date: 20070424
  Transmission Date: 20110219
  Serious: No
  Sender: FDA-Public Use
  Company Number: US-PFIZER INC-2007031779

PATIENT
  Sex: Female
  Weight: 45.36 kg

DRUGS (4)
  1. CHANTIX [Suspect]
     Indication: SMOKING CESSATION THERAPY
     Dates: start: 20070201
  2. ZOCOR [Concomitant]
  3. ALLEGRA [Concomitant]
  4. NASACORT [Concomitant]

REACTIONS (3)
  - DRUG INEFFECTIVE [None]
  - FRUSTRATION [None]
  - NAUSEA [None]
